FAERS Safety Report 11933218 (Version 4)
Quarter: 2016Q3

REPORT INFORMATION
  Report Type: Report from Study
  Country: FR (occurrence: FR)
  Receive Date: 20160121
  Receipt Date: 20160712
  Transmission Date: 20161109
  Serious: Yes (Death, Hospitalization)
  Sender: FDA-Public Use
  Company Number: FR-ACTELION-A-CH2016-130139

PATIENT
  Age: 86 Year
  Sex: Female

DRUGS (3)
  1. TRACLEER [Suspect]
     Active Substance: BOSENTAN
     Dosage: 62.5 MG, BID
     Route: 048
     Dates: start: 20140114, end: 20140414
  2. LASILIX [Concomitant]
     Active Substance: FUROSEMIDE
  3. TRACLEER [Suspect]
     Active Substance: BOSENTAN
     Indication: PULMONARY ARTERIAL HYPERTENSION
     Dosage: 125 MG, BID
     Route: 048
     Dates: start: 20140415, end: 20141217

REACTIONS (7)
  - Transfusion [Unknown]
  - Haematemesis [Unknown]
  - Pulmonary arterial hypertension [Fatal]
  - Hypertension [Unknown]
  - Cardiac failure [Fatal]
  - General physical health deterioration [Fatal]
  - Dyspnoea exertional [Fatal]

NARRATIVE: CASE EVENT DATE: 2014
